FAERS Safety Report 21264253 (Version 1)
Quarter: 2022Q3

REPORT INFORMATION
  Report Type: Spontaneous
  Country: US (occurrence: US)
  Receive Date: 20220829
  Receipt Date: 20220829
  Transmission Date: 20221027
  Serious: Yes (Hospitalization)
  Sender: FDA-Public Use
  Company Number: US-BRISTOL-MYERS SQUIBB COMPANY-2022-096860

PATIENT
  Age: 43 Year
  Sex: Female

DRUGS (1)
  1. ABRAXANE [Suspect]
     Active Substance: PACLITAXEL
     Indication: Small intestine carcinoma metastatic
     Dosage: FREQ : DAY 1, 8, 15 EVERY 4 WEEKS.
     Route: 065
     Dates: end: 20220822

REACTIONS (2)
  - Adverse event [Unknown]
  - Off label use [Unknown]
